FAERS Safety Report 4441070-4 (Version None)
Quarter: 2004Q3

REPORT INFORMATION
  Report Type: 
  Country: None (occurrence: None)
  Receive Date: 20040902
  Receipt Date: 20040902
  Transmission Date: 20050211
  Serious: Yes (Other)
  Sender: FDA-Public Use
  Company Number: None

PATIENT
  Age: 38 Year
  Sex: Female
  Weight: 88.905 kg

DRUGS (4)
  1. IRON DEXTRAN [Suspect]
     Indication: ANAEMIA
     Dosage: 500 MG ONE TIME INTRAVENOUS
     Route: 042
     Dates: start: 20040811, end: 20040811
  2. PRILOSEC [Concomitant]
  3. IRON TABLETS [Concomitant]
  4. BIRTH CONTROL TABLETS [Concomitant]

REACTIONS (3)
  - INFUSION RELATED REACTION [None]
  - RASH MACULAR [None]
  - RASH PRURITIC [None]
